FAERS Safety Report 6357228-3 (Version None)
Quarter: 2009Q3

REPORT INFORMATION
  Report Type: 
  Country: None (occurrence: None)
  Receive Date: 20090911
  Receipt Date: 20090828
  Transmission Date: 20100115
  Serious: Yes (Death)
  Sender: FDA-Public Use
  Company Number: AUR-APL-2009-00528

PATIENT
  Age: 51 Year
  Sex: Female

DRUGS (3)
  1. RISPERIDONE [Suspect]
  2. HALOPERIDOL [Suspect]
  3. BENZTROPINE MESYLATE [Suspect]

REACTIONS (3)
  - ACUTE RESPIRATORY DISTRESS SYNDROME [None]
  - ILEUS PARALYTIC [None]
  - INCORRECT DOSE ADMINISTERED [None]
